FAERS Safety Report 9046950 (Version 1)
Quarter: 2013Q1

REPORT INFORMATION
  Report Type: Spontaneous
  Country: CO (occurrence: CO)
  Receive Date: 20130204
  Receipt Date: 20130204
  Transmission Date: 20140127
  Serious: Yes (Disabling)
  Sender: FDA-Public Use
  Company Number: CO-JNJFOC-20130114238

PATIENT
  Age: 49 None
  Sex: Female

DRUGS (1)
  1. STELARA [Suspect]
     Indication: PSORIASIS
     Dosage: DOSE DELAYED
     Route: 058
     Dates: start: 201212

REACTIONS (3)
  - Psoriasis [Not Recovered/Not Resolved]
  - Bedridden [Unknown]
  - Drug dose omission [Not Recovered/Not Resolved]
